FAERS Safety Report 22771970 (Version 2)
Quarter: 2024Q4

REPORT INFORMATION
  Report Type: Spontaneous
  Country: PH (occurrence: PH)
  Receive Date: 20230801
  Receipt Date: 20241016
  Transmission Date: 20250114
  Serious: Yes (Hospitalization, Other)
  Sender: SANDOZ
  Company Number: PH-002147023-NVSC2023PH136701

PATIENT
  Age: 56 Year
  Sex: Male
  Weight: 71 kg

DRUGS (12)
  1. LEVOFLOXACIN [Suspect]
     Active Substance: LEVOFLOXACIN
     Indication: Tuberculosis
     Dosage: 1000 MG
     Route: 048
     Dates: start: 20230529, end: 20230613
  2. LEVOFLOXACIN [Suspect]
     Active Substance: LEVOFLOXACIN
     Dosage: 1000 MG
     Route: 048
     Dates: start: 20230620
  3. LEVOFLOXACIN [Suspect]
     Active Substance: LEVOFLOXACIN
     Dosage: 1000 MG
     Route: 048
     Dates: start: 20230718
  4. LINEZOLID [Suspect]
     Active Substance: LINEZOLID
     Indication: Tuberculosis
     Dosage: 1200 MG
     Route: 048
     Dates: start: 20230529, end: 20230613
  5. LINEZOLID [Suspect]
     Active Substance: LINEZOLID
     Dosage: 1200 MG
     Route: 048
     Dates: start: 20230629
  6. LINEZOLID [Suspect]
     Active Substance: LINEZOLID
     Dosage: 1200 MG (REDUCED DOSE AT 600MG OD)
     Route: 048
     Dates: start: 20230620
  7. APIXABAN [Concomitant]
     Active Substance: APIXABAN
     Indication: Product used for unknown indication
     Dosage: 5 MG, BID
     Route: 065
     Dates: start: 20230704
  8. ATORVASTATIN [Concomitant]
     Active Substance: ATORVASTATIN
     Indication: Product used for unknown indication
     Dosage: 20 MG, OD
     Route: 065
     Dates: start: 20230607
  9. FERROUS SULFATE [Concomitant]
     Active Substance: FERROUS SULFATE
     Indication: Product used for unknown indication
     Dosage: 500 MG, BID
     Route: 048
  10. GLICLAZIDE [Concomitant]
     Active Substance: GLICLAZIDE
     Indication: Product used for unknown indication
     Dosage: 60 MG, OD
     Route: 065
     Dates: start: 20230607
  11. MELATONIN [Concomitant]
     Active Substance: MELATONIN
     Indication: Product used for unknown indication
     Dosage: 3 MG, OD
     Route: 065
     Dates: start: 20230607
  12. METFORMIN [Concomitant]
     Active Substance: METFORMIN HYDROCHLORIDE
     Indication: Product used for unknown indication
     Dosage: 500 MG, TID
     Route: 065
     Dates: start: 20230607, end: 20230614

REACTIONS (3)
  - Anaemia [Unknown]
  - Acute kidney injury [Recovered/Resolved]
  - Cholelithiasis [Recovered/Resolved]

NARRATIVE: CASE EVENT DATE: 20230613
